FAERS Safety Report 5383181-5 (Version None)
Quarter: 2007Q3

REPORT INFORMATION
  Report Type: 
  Country: None (occurrence: None)
  Receive Date: 20070710
  Receipt Date: 20070627
  Transmission Date: 20080115
  Serious: Yes (Hospitalization, Other)
  Sender: FDA-Public Use
  Company Number: US-ELI_LILLY_AND_COMPANY-US200705004620

PATIENT
  Age: 92 Year
  Sex: Female

DRUGS (8)
  1. FORTEO [Suspect]
     Indication: OSTEOPOROSIS
     Dosage: 20 UG, DAILY (1/D)
     Dates: start: 20060601
  2. REQUIP [Concomitant]
  3. CARBIDOPA AND LEVODOPA [Concomitant]
  4. PROTONIX [Concomitant]
  5. DIOVAN [Concomitant]
  6. HYDROCHLOROTHIAZIDE [Concomitant]
  7. CALCIUM CHLORIDE [Concomitant]
  8. VITAMIN D [Concomitant]

REACTIONS (6)
  - BALANCE DISORDER [None]
  - FALL [None]
  - HAND FRACTURE [None]
  - PAIN [None]
  - RIB FRACTURE [None]
  - UPPER LIMB FRACTURE [None]
